FAERS Safety Report 4512475-8 (Version None)
Quarter: 2004Q4

REPORT INFORMATION
  Report Type: 
  Country: None (occurrence: None)
  Receive Date: 20041124
  Receipt Date: 20041104
  Transmission Date: 20050328
  Serious: Yes (Other)
  Sender: FDA-Public Use
  Company Number: US_0411107921

PATIENT
  Age: 70 Year
  Sex: Female

DRUGS (3)
  1. FORTEO [Suspect]
     Indication: OSTEOPOROSIS
     Dates: start: 20040101
  2. CALCIUM [Concomitant]
  3. VITAMIN D [Concomitant]

REACTIONS (2)
  - BLOOD CALCIUM INCREASED [None]
  - FATIGUE [None]
